FAERS Safety Report 6681287-1 (Version None)
Quarter: 2010Q2

REPORT INFORMATION
  Report Type: 
  Country: None (occurrence: None)
  Receive Date: 20100414
  Receipt Date: 20100402
  Transmission Date: 20101027
  Serious: Yes (Hospitalization)
  Sender: FDA-Public Use
  Company Number: US-ROCHE-696895

PATIENT

DRUGS (2)
  1. BEVACIZUMAB [Suspect]
     Indication: MALIGNANT GLIOMA
     Dosage: DATE OF LAST DOSE ADMINISTERED: 21 JANUARY 2010.  DOSE:UNKNOWN, FREQUENCY: ON DAY 1 AND 15
     Route: 042
     Dates: start: 20090827
  2. IRINOTECAN HCL [Suspect]
     Indication: MALIGNANT GLIOMA
     Dosage: STARTING ON DAY FIFTEEN.
     Route: 042

REACTIONS (1)
  - BLOOD ALBUMIN DECREASED [None]
